FAERS Safety Report 20431545 (Version 2)
Quarter: 2022Q1

REPORT INFORMATION
  Report Type: Report from Study
  Country: CA (occurrence: CA)
  Receive Date: 20220204
  Receipt Date: 20220223
  Transmission Date: 20220423
  Serious: Yes (Other)
  Sender: FDA-Public Use
  Company Number: CA-PFIZER INC-202200173967

PATIENT
  Age: 65 Year
  Sex: Male

DRUGS (5)
  1. METHOTREXATE SODIUM [Suspect]
     Active Substance: METHOTREXATE SODIUM
     Route: 065
  2. HUMIRA [Suspect]
     Active Substance: ADALIMUMAB
     Indication: Rheumatoid arthritis
     Dosage: 40 MG 1 EVERY 2 WEEKS
     Route: 058
  3. HUMIRA [Suspect]
     Active Substance: ADALIMUMAB
     Indication: Rheumatoid arthritis
     Dosage: 40 MG 1 EVERY 2 WEEKS
     Route: 058
  4. COVID-19 VACCINE [Concomitant]
     Indication: COVID-19 prophylaxis
     Route: 065
  5. COVID-19 VACCINE [Concomitant]
     Dosage: UNK
     Route: 065

REACTIONS (5)
  - Adrenal gland cancer [Recovered/Resolved]
  - Arthralgia [Recovered/Resolved]
  - Lung disorder [Recovered/Resolved]
  - Musculoskeletal stiffness [Recovered/Resolved]
  - Pain [Recovered/Resolved]
